FAERS Safety Report 8824491 (Version 2)
Quarter: 2012Q4

REPORT INFORMATION
  Report Type: 
  Country: US (occurrence: US)
  Receive Date: 20121004
  Receipt Date: 20121105
  Transmission Date: 20130627
  Serious: Yes (Other)
  Sender: FDA-Public Use
  Company Number: US-PFIZER INC-2012241908

PATIENT
  Age: 60 Year
  Sex: Male
  Weight: 92 kg

DRUGS (5)
  1. SUTENT [Suspect]
     Indication: RENAL CELL CARCINOMA
     Dosage: 50 mg, daily
     Route: 048
     Dates: start: 20120914, end: 20121026
  2. SUTENT [Suspect]
     Indication: RENAL FAILURE
  3. CARTIA XT [Concomitant]
     Indication: HYPERTENSION
     Dosage: 180 mg, 1x/day
     Dates: start: 2008
  4. NORCO [Concomitant]
     Indication: LOW BACK PAIN
     Dosage: hydrocodone bitartrate 5 mg/ acetaminophen 325 mg daily
  5. GABAPENTIN [Concomitant]
     Indication: PINS AND NEEDLES
     Dosage: 100 mg, 3x/day

REACTIONS (5)
  - Blood pressure increased [Recovering/Resolving]
  - Palmar-plantar erythrodysaesthesia syndrome [Recovered/Resolved]
  - Blood creatinine decreased [Unknown]
  - Haemoglobin decreased [Unknown]
  - White blood cell count decreased [Unknown]
